FAERS Safety Report 9276269 (Version 2)
Quarter: 2013Q2

REPORT INFORMATION
  Report Type: Report from Study
  Country: US (occurrence: US)
  Receive Date: 20130507
  Receipt Date: 20130516
  Transmission Date: 20140414
  Serious: Yes (Hospitalization)
  Sender: FDA-Public Use
  Company Number: US-ABBOTT-13P-163-1083643-00

PATIENT
  Age: 57 Year
  Sex: Female
  Weight: 103.06 kg

DRUGS (8)
  1. HUMIRA [Suspect]
     Indication: PSORIASIS
     Dates: start: 201304
  2. METFORMIN [Concomitant]
     Indication: BLOOD GLUCOSE ABNORMAL
     Dosage: (2) BID
  3. JANUVIA [Concomitant]
     Indication: BLOOD GLUCOSE ABNORMAL
  4. ZANTAC [Concomitant]
     Indication: DYSPEPSIA
  5. LISINOPRIL [Concomitant]
     Indication: BLOOD PRESSURE
  6. UNKNOWN PILL [Concomitant]
     Indication: BLOOD PRESSURE
  7. XANAX [Concomitant]
     Indication: ANXIETY
  8. PROVENTIL [Concomitant]
     Indication: CHRONIC OBSTRUCTIVE PULMONARY DISEASE
     Dosage: EVERY 4-5 HOURS

REACTIONS (4)
  - Mucosal discolouration [Recovering/Resolving]
  - Pneumonia [Recovering/Resolving]
  - Dizziness [Recovering/Resolving]
  - Asthenia [Recovering/Resolving]
